FAERS Safety Report 5942570-8 (Version None)
Quarter: 2008Q4

REPORT INFORMATION
  Report Type: 
  Country: None (occurrence: None)
  Receive Date: 20081105
  Receipt Date: 20080929
  Transmission Date: 20090506
  Serious: Yes (Life-Threatening, Hospitalization)
  Sender: FDA-Public Use
  Company Number: -MERCK-0809HUN00018

PATIENT
  Age: 20 Day
  Sex: Female
  Weight: 2 kg

DRUGS (2)
  1. PRIMAXIN [Suspect]
     Indication: PNEUMONIA
     Route: 041
     Dates: start: 20080626, end: 20080704
  2. OXYGEN [Concomitant]
     Route: 065

REACTIONS (4)
  - BRADYCARDIA [None]
  - CARDIOVASCULAR DISORDER [None]
  - CYANOSIS [None]
  - LARYNGOSPASM [None]
